FAERS Safety Report 5471541-3 (Version None)
Quarter: 2007Q3

REPORT INFORMATION
  Report Type: 
  Country: None (occurrence: None)
  Receive Date: 20070928
  Receipt Date: 20061229
  Transmission Date: 20080115
  Serious: No
  Sender: FDA-Public Use
  Company Number: US-BRISTOL-MYERS SQUIBB COMPANY-13628383

PATIENT
  Sex: Female

DRUGS (8)
  1. DEFINITY [Suspect]
     Indication: ECHOCARDIOGRAM
     Route: 042
     Dates: start: 20061229
  2. ASPIRIN [Concomitant]
  3. ATACAND [Concomitant]
  4. METOPROLOL SUCCINATE [Concomitant]
  5. NIASPAN [Concomitant]
  6. PLAVIX [Concomitant]
  7. VERAPAMIL [Concomitant]
  8. SIMVASTATIN [Concomitant]

REACTIONS (1)
  - BACK PAIN [None]
